FAERS Safety Report 11227898 (Version 1)
Quarter: 2015Q2

REPORT INFORMATION
  Report Type: Spontaneous
  Country: FR (occurrence: None)
  Receive Date: 20150626
  Receipt Date: 20150626
  Transmission Date: 20150821
  Serious: Yes (Death)
  Sender: FDA-Public Use
  Company Number: DEP_03069_2015

PATIENT
  Sex: Male

DRUGS (3)
  1. GABAPENTIN (GABAPENTIN) [Suspect]
     Active Substance: GABAPENTIN
     Indication: MATERNAL EXPOSURE DURING PREGNANCY
     Dosage: DF
  2. LEVONORGESTREL. [Concomitant]
     Active Substance: LEVONORGESTREL
  3. INSULIN [Concomitant]
     Active Substance: INSULIN NOS

REACTIONS (3)
  - Maternal exposure timing unspecified [None]
  - Maternal drugs affecting foetus [None]
  - Foetal death [None]
